FAERS Safety Report 4874248-6 (Version None)
Quarter: 2006Q1

REPORT INFORMATION
  Report Type: 
  Country: None (occurrence: None)
  Receive Date: 20060106
  Receipt Date: 20051005
  Transmission Date: 20060701
  Serious: Yes (Hospitalization)
  Sender: FDA-Public Use
  Company Number: US-MERCK-0510USA04559

PATIENT
  Age: 84 Year
  Sex: Male
  Weight: 82 kg

DRUGS (8)
  1. VIOXX [Suspect]
     Indication: ARTHRITIS
     Route: 048
     Dates: start: 20000101, end: 20040101
  2. LOPRESSOR [Concomitant]
     Route: 065
  3. DYAZIDE [Concomitant]
     Route: 065
  4. PRAVACHOL [Concomitant]
     Route: 065
  5. VASOTEC [Concomitant]
     Route: 065
  6. ASPIRIN [Concomitant]
     Route: 065
  7. LORATADINE [Concomitant]
     Route: 065
  8. COMBIVENT [Concomitant]
     Route: 065

REACTIONS (5)
  - ATRIAL FIBRILLATION [None]
  - CARDIOVASCULAR DISORDER [None]
  - CEREBROVASCULAR ACCIDENT [None]
  - HEART RATE IRREGULAR [None]
  - TRANSIENT ISCHAEMIC ATTACK [None]
